FAERS Safety Report 7157064-4 (Version None)
Quarter: 2010Q4

REPORT INFORMATION
  Report Type: 
  Country: None (occurrence: None)
  Receive Date: 20101214
  Receipt Date: 20091230
  Transmission Date: 20110411
  Serious: No
  Sender: FDA-Public Use
  Company Number: US-ASTRAZENECA-2009SE33957

PATIENT
  Sex: Female
  Weight: 63 kg

DRUGS (2)
  1. CRESTOR [Suspect]
     Route: 048
     Dates: start: 20060101
  2. ANTIDEPRESSENTS [Concomitant]

REACTIONS (2)
  - DRY EYE [None]
  - MYALGIA [None]
